FAERS Safety Report 5888235-2 (Version None)
Quarter: 2008Q3

REPORT INFORMATION
  Report Type: 
  Country: None (occurrence: None)
  Receive Date: 20080916
  Receipt Date: 20080819
  Transmission Date: 20090109
  Serious: Yes (Congenital Anomaly)
  Sender: FDA-Public Use
  Company Number: 2008S1000089

PATIENT
  Sex: Female
  Weight: 3.402 kg

DRUGS (1)
  1. SORIATANE [Suspect]
     Dosage: ; TRPL
     Route: 064

REACTIONS (5)
  - BREECH PRESENTATION [None]
  - CEREBRAL CYST [None]
  - MATERNAL DRUGS AFFECTING FOETUS [None]
  - MULTIPLE CONGENITAL ABNORMALITIES [None]
  - SINGLE UMBILICAL ARTERY [None]
